FAERS Safety Report 7096374-6 (Version None)
Quarter: 2010Q4

REPORT INFORMATION
  Report Type: 
  Country: None (occurrence: None)
  Receive Date: 20101111
  Receipt Date: 20100813
  Transmission Date: 20110411
  Serious: No
  Sender: FDA-Public Use
  Company Number: US-BRISTOL-MYERS SQUIBB COMPANY-15233604

PATIENT
  Age: 59 Year
  Sex: Female

DRUGS (1)
  1. IXEMPRA KIT [Suspect]
     Dosage: OVER 30 MINUTES. 3RD CYCLE

REACTIONS (2)
  - MEDICATION ERROR [None]
  - NO ADVERSE EVENT [None]
